FAERS Safety Report 11949043 (Version 1)
Quarter: 2016Q1

REPORT INFORMATION
  Report Type: Spontaneous
  Country: US (occurrence: US)
  Receive Date: 20160125
  Receipt Date: 20160125
  Transmission Date: 20160526
  Serious: Yes (Hospitalization)
  Sender: FDA-Public Use
  Company Number: US-TEVA-627963USA

PATIENT
  Age: 17 Year

DRUGS (2)
  1. PREDNISONE. [Suspect]
     Active Substance: PREDNISONE
     Indication: BRONCHIAL HYPERREACTIVITY
     Dosage: 50 MG/DAY FOR 5 DAYS
     Route: 048
     Dates: start: 20150214
  2. METHYLPREDNISOLONE. [Suspect]
     Active Substance: METHYLPREDNISOLONE
     Indication: BRONCHIAL HYPERREACTIVITY
     Dosage: 125MG
     Route: 042
     Dates: start: 20150215

REACTIONS (1)
  - Measles [Unknown]

NARRATIVE: CASE EVENT DATE: 20150302
